FAERS Safety Report 14599476 (Version 1)
Quarter: 2018Q1

REPORT INFORMATION
  Report Type: Spontaneous
  Country: DE (occurrence: DE)
  Receive Date: 20180305
  Receipt Date: 20180305
  Transmission Date: 20180509
  Serious: Yes (Other)
  Sender: FDA-Public Use
  Company Number: DE-PFIZER INC-2018086746

PATIENT
  Age: 78 Year
  Sex: Female

DRUGS (3)
  1. MARCUMAR [Concomitant]
     Active Substance: PHENPROCOUMON
     Dosage: UNK
  2. FOLIC ACID. [Concomitant]
     Active Substance: FOLIC ACID
     Dosage: 24 HOURS AFTER INJECTION
  3. LANTAREL [Suspect]
     Active Substance: METHOTREXATE SODIUM
     Indication: POLYARTHRITIS
     Dosage: 7.5 MG, UNK

REACTIONS (6)
  - Blindness [Unknown]
  - Sunburn [Recovering/Resolving]
  - Pain [Recovering/Resolving]
  - Alopecia [Recovering/Resolving]
  - Ocular vascular disorder [Unknown]
  - Inflammation [Recovering/Resolving]

NARRATIVE: CASE EVENT DATE: 20150101
